FAERS Safety Report 20775854 (Version 1)
Quarter: 2022Q2

REPORT INFORMATION
  Report Type: Spontaneous
  Country: US (occurrence: US)
  Receive Date: 20220502
  Receipt Date: 20220502
  Transmission Date: 20220721
  Serious: No
  Sender: FDA-Public Use
  Company Number: US-PFIZER INC-2019355858

PATIENT
  Age: 60 Year
  Sex: Female

DRUGS (4)
  1. PREGABALIN [Suspect]
     Active Substance: PREGABALIN
     Indication: Diabetes mellitus
     Dosage: 300 MG, 2X/DAY
     Route: 048
  2. PREGABALIN [Suspect]
     Active Substance: PREGABALIN
     Indication: Diabetic neuropathy
  3. PREGABALIN [Suspect]
     Active Substance: PREGABALIN
     Indication: Schizoaffective disorder
  4. PREGABALIN [Suspect]
     Active Substance: PREGABALIN
     Indication: Neuropathy peripheral

REACTIONS (4)
  - Off label use [Unknown]
  - Product use issue [Unknown]
  - Limb discomfort [Unknown]
  - Drug ineffective [Unknown]
